FAERS Safety Report 19436378 (Version 2)
Quarter: 2022Q4

REPORT INFORMATION
  Report Type: Spontaneous
  Country: CA (occurrence: CA)
  Receive Date: 20210618
  Receipt Date: 20221115
  Transmission Date: 20230112
  Serious: Yes (Hospitalization, Other)
  Sender: FDA-Public Use
  Company Number: None

PATIENT
  Age: 68 Year
  Sex: Male

DRUGS (15)
  1. GEMCITABINE [Suspect]
     Active Substance: GEMCITABINE
     Indication: Pancreatic carcinoma
     Dosage: INTRAVENOUS DRIP
     Route: 042
  2. ABRAXANE [Suspect]
     Active Substance: PACLITAXEL
     Indication: Pancreatic carcinoma
     Dosage: POWDER FOR SUSPENSION INTRAVENOUS, INJECTABLE SUSPENSION, INTRAVENOUS DRIP
     Route: 042
  3. DURVALUMAB [Suspect]
     Active Substance: DURVALUMAB
     Indication: Pancreatic carcinoma
     Dosage: INTRAVENOUS DRIP
     Route: 042
  4. TREMELIMUMAB [Suspect]
     Active Substance: TREMELIMUMAB
     Indication: Pancreatic carcinoma
     Dosage: INTRAVENOUS DRIP
     Route: 042
  5. ACETAMINOPHEN [Concomitant]
     Active Substance: ACETAMINOPHEN
     Indication: Abdominal pain
     Route: 065
  6. BISACODYL [Concomitant]
     Active Substance: BISACODYL
     Indication: Constipation
     Route: 065
  7. CODEINE [Concomitant]
     Active Substance: CODEINE
     Indication: Abdominal pain
     Route: 065
  8. DOCUSATE [Concomitant]
     Active Substance: DOCUSATE
     Indication: Constipation
     Route: 065
  9. POLYETHYLENE GLYCOL 3350 [Concomitant]
     Active Substance: POLYETHYLENE GLYCOL 3350
     Indication: Constipation
     Route: 065
  10. ERGOCALCIFEROL [Concomitant]
     Active Substance: ERGOCALCIFEROL
     Indication: Routine health maintenance
     Route: 065
  11. PREDNISONE [Concomitant]
     Active Substance: PREDNISONE
     Route: 065
  12. TAMSULOSIN [Concomitant]
     Active Substance: TAMSULOSIN
     Indication: Pollakiuria
     Route: 065
  13. VITAMIN C [Concomitant]
     Active Substance: ASCORBIC ACID
     Indication: Routine health maintenance
     Route: 065
  14. VITAMINS NOS [Concomitant]
     Active Substance: VITAMINS
     Indication: Routine health maintenance
     Route: 065
  15. ABRAXANE [Suspect]
     Active Substance: PACLITAXEL
     Indication: Pancreatic carcinoma
     Dosage: INJECTION FOR INFUSION, INTRAVENOUS DRIP
     Route: 042

REACTIONS (1)
  - Encephalopathy [Recovered/Resolved]
